FAERS Safety Report 9693891 (Version 2)
Quarter: 2013Q4

REPORT INFORMATION
  Report Type: Spontaneous
  Country: IT (occurrence: IT)
  Receive Date: 20131118
  Receipt Date: 20131127
  Transmission Date: 20140711
  Serious: Yes (Other)
  Sender: FDA-Public Use
  Company Number: IT-PFIZER INC-2013327550

PATIENT
  Age: 36 Year
  Sex: Female

DRUGS (4)
  1. XANAX [Suspect]
     Indication: DEPRESSION
     Dosage: 6 MG, DAILY
     Route: 048
  2. XANAX [Suspect]
     Dosage: UNK
     Route: 048
  3. CIPRALEX [Concomitant]
     Indication: DEPRESSION
     Dosage: 20 MG, UNK
     Route: 048
     Dates: start: 20120101
  4. SERETIDE [Concomitant]
     Indication: ASTHMA
     Dosage: 2 DF, UNK
     Route: 045
     Dates: start: 20120101

REACTIONS (2)
  - Syncope [Recovered/Resolved]
  - Intentional self-injury [Unknown]
